FAERS Safety Report 6065912-4 (Version None)
Quarter: 2009Q1

REPORT INFORMATION
  Report Type: 
  Country: None (occurrence: None)
  Receive Date: 20090205
  Receipt Date: 20090123
  Transmission Date: 20090719
  Serious: Yes (Hospitalization)
  Sender: FDA-Public Use
  Company Number: US-CELGENEUS-163-20785-09011301

PATIENT
  Sex: Male

DRUGS (2)
  1. THALOMID [Suspect]
     Indication: MULTIPLE MYELOMA
     Route: 048
     Dates: start: 20090106
  2. THALOMID [Suspect]
     Route: 048
     Dates: start: 20080724, end: 20090101

REACTIONS (2)
  - BLOOD COUNT ABNORMAL [None]
  - LIVER DISORDER [None]
